FAERS Safety Report 19468361 (Version 1)
Quarter: 2021Q2

REPORT INFORMATION
  Report Type: Spontaneous
  Country: US (occurrence: US)
  Receive Date: 20210628
  Receipt Date: 20210628
  Transmission Date: 20210717
  Serious: No
  Sender: FDA-Public Use
  Company Number: US-009507513-2106USA006595

PATIENT
  Sex: Male

DRUGS (1)
  1. DIFICID [Suspect]
     Active Substance: FIDAXOMICIN
     Dosage: IF TOOK 2 TABLETS TODAY AND 1 TABLET YESTERDAY OR 2 TABLETS YESTERDAY AND 3 TABLETS TODAY/ MIGHT 3 T
     Route: 048

REACTIONS (2)
  - Incorrect dose administered [Unknown]
  - No adverse event [Unknown]

NARRATIVE: CASE EVENT DATE: 20210621
